FAERS Safety Report 18109593 (Version 1)
Quarter: 2020Q3

REPORT INFORMATION
  Report Type: Spontaneous
  Country: US (occurrence: US)
  Receive Date: 20200804
  Receipt Date: 20200804
  Transmission Date: 20201103
  Serious: Yes (Other)
  Sender: FDA-Public Use
  Company Number: US-CURIUM-202000260

PATIENT
  Age: 23 Year
  Sex: Female

DRUGS (3)
  1. LEVOTHYROXINE. [Concomitant]
     Active Substance: LEVOTHYROXINE
     Indication: PRODUCT USED FOR UNKNOWN INDICATION
  2. DESICCATED THYROID EXTRACT [Concomitant]
     Indication: PRODUCT USED FOR UNKNOWN INDICATION
  3. SODIUM IODIDE I 131 [Suspect]
     Active Substance: SODIUM IODIDE I-131
     Indication: RADIOACTIVE IODINE THERAPY
     Route: 065

REACTIONS (2)
  - Preterm premature rupture of membranes [Not Recovered/Not Resolved]
  - Drug exposure before pregnancy [Recovered/Resolved]
